FAERS Safety Report 19822545 (Version 1)
Quarter: 2021Q3

REPORT INFORMATION
  Report Type: Spontaneous
  Country: US (occurrence: US)
  Receive Date: 20210913
  Receipt Date: 20210913
  Transmission Date: 20211014
  Serious: No
  Sender: FDA-Public Use
  Company Number: US-ASTRAZENECA-2021A712903

PATIENT
  Age: 56 Year
  Sex: Male
  Weight: 156.5 kg

DRUGS (2)
  1. BYDUREON BCISE [Suspect]
     Active Substance: EXENATIDE
     Indication: TYPE 2 DIABETES MELLITUS
     Route: 058
     Dates: start: 202103
  2. BYDUREON [Suspect]
     Active Substance: EXENATIDE
     Indication: TYPE 2 DIABETES MELLITUS
     Route: 058
     Dates: end: 202103

REACTIONS (8)
  - Injection site pain [Unknown]
  - Wrong technique in device usage process [Unknown]
  - Glycosylated haemoglobin abnormal [Unknown]
  - Device use issue [Not Recovered/Not Resolved]
  - Device leakage [Unknown]
  - Injection site pain [Recovered/Resolved]
  - Blood glucose abnormal [Not Recovered/Not Resolved]
  - Incorrect dose administered by device [Not Recovered/Not Resolved]

NARRATIVE: CASE EVENT DATE: 2021
